FAERS Safety Report 19943482 (Version 1)
Quarter: 2021Q4

REPORT INFORMATION
  Report Type: Spontaneous
  Country: US (occurrence: US)
  Receive Date: 20211011
  Receipt Date: 20211011
  Transmission Date: 20220303
  Serious: Yes (Other)
  Sender: FDA-Public Use
  Company Number: US-FERRINGPH-2021FE06427

PATIENT
  Age: 64 Year
  Sex: Male

DRUGS (2)
  1. FIRMAGON [Suspect]
     Active Substance: DEGARELIX ACETATE
     Indication: Product used for unknown indication
     Route: 065
  2. ENZALUTAMIDE [Suspect]
     Active Substance: ENZALUTAMIDE
     Indication: Prostate cancer
     Dosage: 160 MG, 1 TIME DAILY
     Route: 048
     Dates: start: 202107

REACTIONS (6)
  - Consciousness fluctuating [Unknown]
  - Seizure [Unknown]
  - Tremor [Unknown]
  - Mental status changes [Unknown]
  - Prostatic specific antigen abnormal [Unknown]
  - Bone pain [Unknown]

NARRATIVE: CASE EVENT DATE: 20210101
